FAERS Safety Report 20257436 (Version 1)
Quarter: 2021Q4

REPORT INFORMATION
  Report Type: Report from Study
  Country: BR (occurrence: BR)
  Receive Date: 20211230
  Receipt Date: 20211230
  Transmission Date: 20220303
  Serious: Yes (Other)
  Sender: FDA-Public Use
  Company Number: BR-JNJFOC-20211254726

PATIENT
  Age: 31 Year
  Sex: Male
  Weight: 58 kg

DRUGS (1)
  1. INFLIXIMAB [Suspect]
     Active Substance: INFLIXIMAB
     Indication: Crohn^s disease
     Dosage: 3 VIALS, THE LAST MEDICATION INFUSION WAS IN OCT-2021
     Route: 042
     Dates: start: 20201203

REACTIONS (3)
  - Pneumonia pseudomonal [Not Recovered/Not Resolved]
  - Off label use [Unknown]
  - Product use issue [Unknown]
